FAERS Safety Report 9102890 (Version 5)
Quarter: 2013Q3

REPORT INFORMATION
  Report Type: Report from Study
  Country: DE (occurrence: DE)
  Receive Date: 20130218
  Receipt Date: 20130807
  Transmission Date: 20140515
  Serious: Yes (Hospitalization)
  Sender: FDA-Public Use
  Company Number: DE-ROCHE-1189917

PATIENT
  Age: 42 Year
  Sex: Female

DRUGS (3)
  1. PERTUZUMAB [Suspect]
     Indication: BREAST CANCER
     Route: 065
     Dates: start: 20130207, end: 20130207
  2. PERTUZUMAB [Suspect]
     Route: 042
     Dates: start: 20130226
  3. EUPHYLONG [Concomitant]
     Route: 065
     Dates: start: 20130207, end: 20130207

REACTIONS (2)
  - Hypersensitivity [Recovered/Resolved]
  - Dyspnoea [Recovered/Resolved]
